FAERS Safety Report 7988170-X (Version None)
Quarter: 2011Q4

REPORT INFORMATION
  Report Type: 
  Country: None (occurrence: None)
  Receive Date: 20111216
  Receipt Date: 20101209
  Transmission Date: 20120403
  Serious: No
  Sender: FDA-Public Use
  Company Number: US-BRISTOL-MYERS SQUIBB COMPANY-15433154

PATIENT
  Age: 11 Year
  Sex: Male

DRUGS (3)
  1. ABILIFY [Suspect]
     Indication: ANXIETY
     Dosage: 1 DF = ONE HALF OF A 2 MG TABLET INCREASED THE DOSE TO 2 MG.
     Dates: start: 20100101
  2. ABILIFY [Suspect]
     Indication: AUTISM
     Dosage: 1 DF = ONE HALF OF A 2 MG TABLET INCREASED THE DOSE TO 2 MG.
     Dates: start: 20100101
  3. CITALOPRAM HYDROBROMIDE [Suspect]

REACTIONS (1)
  - RASH PRURITIC [None]
